FAERS Safety Report 17170871 (Version 1)
Quarter: 2019Q4

REPORT INFORMATION
  Report Type: Spontaneous
  Country: CA (occurrence: CA)
  Receive Date: 20191218
  Receipt Date: 20191218
  Transmission Date: 20200122
  Serious: Yes (Other)
  Sender: FDA-Public Use
  Company Number: CA-ASTRAZENECA-2019SF81633

PATIENT
  Age: 46 Year
  Sex: Male
  Weight: 84 kg

DRUGS (6)
  1. BISOPROLOL [Concomitant]
     Active Substance: BISOPROLOL
  2. LIPITOR [Concomitant]
     Active Substance: ATORVASTATIN CALCIUM
  3. ATACAND [Concomitant]
     Active Substance: CANDESARTAN CILEXETIL
  4. ASA [Concomitant]
     Active Substance: ASPIRIN
  5. BRILINTA [Suspect]
     Active Substance: TICAGRELOR
     Indication: THROMBOSIS PROPHYLAXIS
     Route: 048
  6. INDAPAMIDE. [Concomitant]
     Active Substance: INDAPAMIDE

REACTIONS (5)
  - Sleep deficit [Recovered/Resolved]
  - Sleep apnoea syndrome [Recovered/Resolved]
  - Gastrointestinal disorder [Recovered/Resolved]
  - Respiratory distress [Recovered/Resolved]
  - Abdominal pain [Recovered/Resolved]
